FAERS Safety Report 5849079-0 (Version None)
Quarter: 2008Q3

REPORT INFORMATION
  Report Type: 
  Country: None (occurrence: None)
  Receive Date: 20080819
  Receipt Date: 20080808
  Transmission Date: 20090109
  Serious: Yes (Hospitalization)
  Sender: FDA-Public Use
  Company Number: PHHY2008FR17735

PATIENT
  Sex: Female

DRUGS (9)
  1. STALEVO 100 [Suspect]
     Dosage: 200/50/37.5 MG X 3 DAILY
     Dates: start: 20080219, end: 20080510
  2. INIPOMP [Suspect]
     Dosage: UNK
     Route: 048
     Dates: start: 20080201, end: 20080510
  3. DEROXAT [Suspect]
     Dosage: UNK
     Route: 048
     Dates: start: 20080219, end: 20080510
  4. IMODIUM [Suspect]
     Dosage: UNK
  5. IMODIUM [Suspect]
     Dosage: UNK
     Dates: end: 20080601
  6. REQUIP [Concomitant]
     Dosage: UNK
     Route: 048
  7. SINEMET [Concomitant]
     Dosage: 25/50 MG BID 3 DAILY
     Route: 048
  8. CLOZAPINE [Concomitant]
     Dosage: UNK
     Route: 048
     Dates: start: 20080219
  9. XANAX [Concomitant]
     Dosage: UNK
     Route: 048
     Dates: start: 20080219

REACTIONS (12)
  - ALANINE AMINOTRANSFERASE INCREASED [None]
  - ASPARTATE AMINOTRANSFERASE INCREASED [None]
  - BLOOD ALKALINE PHOSPHATASE INCREASED [None]
  - CARCINOID TUMOUR OF THE SMALL BOWEL [None]
  - CHOLESTASIS [None]
  - CYTOLYTIC HEPATITIS [None]
  - DIARRHOEA [None]
  - FLUSHING [None]
  - GAMMA-GLUTAMYLTRANSFERASE INCREASED [None]
  - HEPATOCELLULAR INJURY [None]
  - HYPOTENSION [None]
  - SURGERY [None]
